FAERS Safety Report 5221591-7 (Version None)
Quarter: 2007Q1

REPORT INFORMATION
  Report Type: 
  Country: None (occurrence: None)
  Receive Date: 20070129
  Receipt Date: 20070122
  Transmission Date: 20070707
  Serious: Yes (Hospitalization)
  Sender: FDA-Public Use
  Company Number: US-RB-004843-07

PATIENT
  Sex: Male
  Weight: 99 kg

DRUGS (3)
  1. SUBUTEX [Suspect]
     Route: 060
     Dates: start: 20061230, end: 20070110
  2. AVELOX [Concomitant]
     Indication: PNEUMONIA
     Dosage: STARTED IV WHILE IN HOSPITAL, NOW TAKING AT HOME, DOSE UNKNOWN
     Dates: start: 20070101
  3. PREDNISONE [Concomitant]
     Indication: PNEUMONIA
     Dosage: UNKNOWN DOSE
     Dates: start: 20070101

REACTIONS (1)
  - PNEUMONIA [None]
